FAERS Safety Report 22293359 (Version 2)
Quarter: 2025Q4

REPORT INFORMATION
  Report Type: Spontaneous
  Country: EU (occurrence: EU)
  Receive Date: 20230508
  Receipt Date: 20251007
  Transmission Date: 20260118
  Serious: Yes (Hospitalization)
  Sender: AUROBINDO
  Company Number: EU-MYLANLABS-2023M1042318

PATIENT
  Age: 65 Year
  Sex: Female

DRUGS (7)
  1. AMISULPRIDE [Suspect]
     Active Substance: AMISULPRIDE
     Indication: Psychiatric symptom
     Dosage: UNK
     Route: 065
  2. ESCITALOPRAM [Suspect]
     Active Substance: ESCITALOPRAM OXALATE
     Indication: Psychiatric symptom
     Dosage: 20 MILLIGRAM
     Route: 065
  3. LORAZEPAM [Suspect]
     Active Substance: LORAZEPAM
     Indication: Psychiatric symptom
     Dosage: 2.5 MILLIGRAM
     Route: 065
  4. MIRTAZAPINE [Concomitant]
     Active Substance: MIRTAZAPINE
     Indication: Psychiatric symptom
     Dosage: 45 MILLIGRAM, AT BED TIME
     Route: 065
  5. LOSARTAN [Concomitant]
     Active Substance: LOSARTAN
     Indication: Hypertension
     Dosage: UNK
     Route: 065
  6. OLANZAPINE [Concomitant]
     Active Substance: OLANZAPINE
     Indication: Psychiatric symptom
     Dosage: 7.5 MILLIGRAM, ONCE A DAY
     Route: 065
  7. CLOMIPRAMINE [Concomitant]
     Active Substance: CLOMIPRAMINE
     Indication: Psychiatric symptom
     Dosage: 75 MILLIGRAM, TWO TIMES A DAY
     Route: 065

REACTIONS (7)
  - Condition aggravated [Recovering/Resolving]
  - Oropharyngeal pain [Recovering/Resolving]
  - Depression [Recovering/Resolving]
  - Feeding disorder [Recovering/Resolving]
  - Repetitive speech [Recovering/Resolving]
  - Delusion [Recovering/Resolving]
  - Therapeutic product effect incomplete [Unknown]

NARRATIVE: CASE EVENT DATE: 20220701
